FAERS Safety Report 9193138 (Version 3)
Quarter: 2013Q2

REPORT INFORMATION
  Report Type: Spontaneous
  Country: US (occurrence: US)
  Receive Date: 20130327
  Receipt Date: 20130509
  Transmission Date: 20140414
  Serious: No
  Sender: FDA-Public Use
  Company Number: US-PFIZER INC-2013095151

PATIENT
  Age: 45 Year
  Sex: Female
  Weight: 102.04 kg

DRUGS (3)
  1. EFFEXOR XR [Suspect]
     Indication: ANXIETY
     Dosage: 37.5 MG, 1X/DAY
     Route: 048
  2. EFFEXOR XR [Suspect]
     Indication: DEPRESSION
     Dosage: 75 MG, 1X/DAY
     Route: 048
  3. LORAZEPAM [Concomitant]
     Dosage: 0.5 MG, 1X/DAY

REACTIONS (9)
  - Drug hypersensitivity [Unknown]
  - Drug ineffective [Unknown]
  - Anxiety [Unknown]
  - Hypertension [Unknown]
  - Headache [Unknown]
  - Dizziness [Unknown]
  - Confusional state [Unknown]
  - Blood cholesterol increased [Unknown]
  - Blood triglycerides increased [Unknown]
